FAERS Safety Report 7013451-6 (Version None)
Quarter: 2010Q3

REPORT INFORMATION
  Report Type: 
  Country: None (occurrence: None)
  Receive Date: 20100924
  Receipt Date: 20100914
  Transmission Date: 20110219
  Serious: Yes (Other)
  Sender: FDA-Public Use
  Company Number: US-PFIZER INC-2010116686

PATIENT
  Age: 9 Year

DRUGS (1)
  1. VFEND [Suspect]
     Indication: PROPHYLAXIS
     Dosage: UNK

REACTIONS (2)
  - ASPERGILLOSIS [None]
  - DRUG INEFFECTIVE [None]
